FAERS Safety Report 5572997-8 (Version None)
Quarter: 2007Q4

REPORT INFORMATION
  Report Type: 
  Country: None (occurrence: None)
  Receive Date: 20071224
  Receipt Date: 20071212
  Transmission Date: 20080405
  Serious: Yes (Hospitalization)
  Sender: FDA-Public Use
  Company Number: IT-ROCHE-508998

PATIENT
  Age: 20 Year
  Sex: Male
  Weight: 85 kg

DRUGS (11)
  1. MYCOPHENOLATE MOFETIL [Suspect]
     Indication: LUPUS NEPHRITIS
     Route: 048
     Dates: start: 20060607, end: 20060822
  2. MYCOPHENOLATE MOFETIL [Suspect]
     Route: 048
     Dates: start: 20060825, end: 20061122
  3. MYCOPHENOLATE MOFETIL [Suspect]
     Route: 048
     Dates: start: 20061206, end: 20070723
  4. AZATHIOPRINE [Suspect]
     Indication: LUPUS NEPHRITIS
     Route: 048
     Dates: start: 20061206, end: 20070723
  5. TENORMIN [Concomitant]
     Dates: start: 20061206
  6. ENAPREN [Concomitant]
     Dates: start: 20060621, end: 20070919
  7. LASIX [Concomitant]
     Dates: start: 20061206
  8. MEPRAL [Concomitant]
     Dates: start: 20051206
  9. COUMADIN [Concomitant]
     Dates: start: 20060902
  10. DELTACORTENE [Concomitant]
     Dates: start: 20060822, end: 20060927
  11. DELTACORTENE [Concomitant]
     Dates: start: 20061206, end: 20070522

REACTIONS (2)
  - LUPUS HEPATITIS [None]
  - TRANSAMINASES INCREASED [None]
